FAERS Safety Report 15795577 (Version 1)
Quarter: 2019Q1

REPORT INFORMATION
  Report Type: Spontaneous
  Country: US (occurrence: US)
  Receive Date: 20190107
  Receipt Date: 20190107
  Transmission Date: 20190417
  Serious: Yes (Other)
  Sender: FDA-Public Use
  Company Number: US-PRINSTON PHARMACEUTICAL INC.-2018PRN01725

PATIENT
  Age: 47 Year
  Sex: Male

DRUGS (1)
  1. LISINOPRIL. [Suspect]
     Active Substance: LISINOPRIL
     Dosage: UNK
     Dates: start: 2004

REACTIONS (3)
  - Pharyngeal oedema [Unknown]
  - Hypersensitivity [Unknown]
  - Lip swelling [Unknown]

NARRATIVE: CASE EVENT DATE: 201809
